FAERS Safety Report 6359224-9 (Version None)
Quarter: 2009Q3

REPORT INFORMATION
  Report Type: 
  Country: None (occurrence: None)
  Receive Date: 20090917
  Receipt Date: 20090908
  Transmission Date: 20100115
  Serious: Yes (Hospitalization, Other)
  Sender: FDA-Public Use
  Company Number: PHHY2009BR36238

PATIENT
  Sex: Male
  Weight: 72 kg

DRUGS (2)
  1. TEGRETOL [Suspect]
     Indication: EPILEPSY
     Dosage: 200 MG, TID
     Route: 048
  2. ROACUTAN [Concomitant]
     Dosage: 2 DF, QHS

REACTIONS (9)
  - ACNE [None]
  - BLISTER [None]
  - CAST APPLICATION [None]
  - DEPRESSED MOOD [None]
  - LIMB INJURY [None]
  - LIMB OPERATION [None]
  - PURULENT DISCHARGE [None]
  - RASH [None]
  - SKIN NECROSIS [None]
